FAERS Safety Report 9281887 (Version 1)
Quarter: 2013Q2

REPORT INFORMATION
  Report Type: Report from Study
  Country: US (occurrence: US)
  Receive Date: 20130510
  Receipt Date: 20130510
  Transmission Date: 20140414
  Serious: Yes (Hospitalization)
  Sender: FDA-Public Use
  Company Number: US-ROCHE-1222652

PATIENT
  Age: 69 Year
  Sex: Male
  Weight: 80 kg

DRUGS (15)
  1. CAPECITABINE [Suspect]
     Indication: NEOPLASM
     Dosage: 21 DAY CYCLE, ON DAY 1-14
     Route: 048
     Dates: start: 20121105, end: 20121119
  2. CAPECITABINE [Suspect]
     Dosage: 21 DAY CYCLE, ON DAY 1-14
     Route: 048
     Dates: start: 20121211
  3. ABT-700 [Suspect]
     Indication: NEOPLASM
     Dosage: 21 DAY CYLE, DAY 1
     Route: 042
     Dates: start: 20121105
  4. OXALIPLATIN [Suspect]
     Indication: NEOPLASM
     Dosage: 21 DAY CYCLE, DAY 1
     Route: 042
     Dates: start: 20121105
  5. FLONASE [Concomitant]
     Indication: RHINORRHOEA
     Route: 065
     Dates: start: 20051112
  6. BENEPROTEIN [Concomitant]
     Route: 065
     Dates: start: 20121112
  7. ZOFRAN [Concomitant]
     Indication: PROPHYLAXIS OF NAUSEA AND VOMITING
     Route: 065
     Dates: start: 20121105
  8. ATIVAN [Concomitant]
     Indication: PROPHYLAXIS OF NAUSEA AND VOMITING
     Route: 065
     Dates: start: 20121105
  9. COMPAZINE [Concomitant]
     Indication: PROPHYLAXIS OF NAUSEA AND VOMITING
     Route: 065
     Dates: start: 20121105
  10. GLUCOSAMINE SULFATE [Concomitant]
     Route: 065
  11. VICODIN [Concomitant]
     Indication: PAIN
     Dosage: 5/500 MG
     Route: 065
  12. PRILOSEC [Concomitant]
     Indication: GASTROOESOPHAGEAL REFLUX DISEASE
     Route: 065
  13. SCOPOLAMINE, TRANSDERMAL [Concomitant]
     Indication: INSOMNIA
     Route: 065
  14. CARAFATE [Concomitant]
     Indication: GASTROOESOPHAGEAL REFLUX DISEASE
     Route: 065
  15. OCEAN NASAL SPRAY [Concomitant]
     Indication: RHINORRHOEA
     Route: 065
     Dates: start: 20121112

REACTIONS (1)
  - International normalised ratio increased [Unknown]
